FAERS Safety Report 20134547 (Version 2)
Quarter: 2021Q4

REPORT INFORMATION
  Report Type: Spontaneous
  Country: SK (occurrence: SK)
  Receive Date: 20211201
  Receipt Date: 20211204
  Transmission Date: 20220303
  Serious: Yes (Death, Hospitalization)
  Sender: FDA-Public Use
  Company Number: SK-NOVARTISPH-NVSC2021SK273878

PATIENT
  Age: 76 Year
  Sex: Female

DRUGS (1)
  1. KISQALI [Suspect]
     Active Substance: RIBOCICLIB
     Indication: Breast cancer
     Dosage: 400 MG DAY 1-21
     Route: 065
     Dates: start: 202001, end: 202111

REACTIONS (5)
  - COVID-19 [Fatal]
  - Cough [Fatal]
  - Dyspnoea [Fatal]
  - Pyrexia [Fatal]
  - Respiratory failure [Fatal]

NARRATIVE: CASE EVENT DATE: 20211121
